FAERS Safety Report 12845072 (Version 1)
Quarter: 2016Q4

REPORT INFORMATION
  Report Type: Spontaneous
  Country: IN (occurrence: IN)
  Receive Date: 20161013
  Receipt Date: 20161013
  Transmission Date: 20170207
  Serious: Yes (Hospitalization)
  Sender: FDA-Public Use
  Company Number: IN-ELI_LILLY_AND_COMPANY-IN201610001850

PATIENT
  Age: 57 Year
  Sex: Male

DRUGS (3)
  1. OLANZAPINE. [Suspect]
     Active Substance: OLANZAPINE
     Indication: ALCOHOL WITHDRAWAL SYNDROME
     Dosage: UNK, QD
     Route: 048
  2. CHLORDIAZEPOXIDE. [Concomitant]
     Active Substance: CHLORDIAZEPOXIDE
     Indication: ALCOHOL WITHDRAWAL SYNDROME
     Dosage: UNK
     Route: 048
  3. QUETIAPINE. [Concomitant]
     Active Substance: QUETIAPINE
     Indication: ALCOHOL WITHDRAWAL SYNDROME
     Dosage: UNK, QD
     Route: 048

REACTIONS (4)
  - Thrombocytopenia [Recovered/Resolved]
  - Extrapyramidal disorder [Recovered/Resolved]
  - Staphylococcal infection [Unknown]
  - Pseudomonas infection [Unknown]
